FAERS Safety Report 11890863 (Version 1)
Quarter: 2016Q1

REPORT INFORMATION
  Report Type: Spontaneous
  Country: US (occurrence: US)
  Receive Date: 20160106
  Receipt Date: 20160106
  Transmission Date: 20160526
  Serious: No
  Sender: FDA-Public Use
  Company Number: US-ELI_LILLY_AND_COMPANY-US201512009390

PATIENT
  Age: 50 Year
  Sex: Male

DRUGS (1)
  1. FORTEO [Suspect]
     Active Substance: TERIPARATIDE
     Indication: FRACTURE
     Dosage: 20 UG, QD
     Route: 065
     Dates: start: 20151121, end: 20151127

REACTIONS (2)
  - Muscle spasms [Recovered/Resolved]
  - Muscular weakness [Recovered/Resolved]
